FAERS Safety Report 7468142-4 (Version None)
Quarter: 2011Q2

REPORT INFORMATION
  Report Type: 
  Country: None (occurrence: None)
  Receive Date: 20110509
  Receipt Date: 20110426
  Transmission Date: 20111010
  Serious: Yes (Other)
  Sender: FDA-Public Use
  Company Number: FR-BAYER-2011-036981

PATIENT
  Age: 49 Year
  Sex: Female

DRUGS (2)
  1. NAPROXEN SODIUM [Suspect]
     Dosage: 1 DF, QD
     Route: 048
     Dates: start: 20110216, end: 20110216
  2. AMOXICILLIN [Suspect]
     Dosage: 1 DF, UNK
     Route: 048
     Dates: start: 20110216, end: 20110216

REACTIONS (3)
  - GENERALISED ERYTHEMA [None]
  - ASTHENIA [None]
  - PRURITUS [None]
